FAERS Safety Report 20093091 (Version 1)
Quarter: 2021Q4

REPORT INFORMATION
  Report Type: Spontaneous
  Country: GR (occurrence: GR)
  Receive Date: 20211120
  Receipt Date: 20211120
  Transmission Date: 20220303
  Serious: Yes (Other)
  Sender: FDA-Public Use
  Company Number: GR-NOVARTISPH-NVSC2021GR259983

PATIENT
  Sex: Male

DRUGS (1)
  1. LEUPROLIDE ACETATE [Suspect]
     Active Substance: LEUPROLIDE ACETATE
     Indication: Product used for unknown indication
     Dosage: 5 MG, Q3MO(FOR TWO YEARS) (INJECTION)
     Route: 065

REACTIONS (3)
  - Erectile dysfunction [Unknown]
  - Hyperhidrosis [Unknown]
  - Penile size reduced [Unknown]
